FAERS Safety Report 8999078 (Version 2)
Quarter: 2013Q1

REPORT INFORMATION
  Report Type: Report from Study
  Country: US (occurrence: US)
  Receive Date: 20130103
  Receipt Date: 20130131
  Transmission Date: 20140127
  Serious: No
  Sender: FDA-Public Use
  Company Number: US-VERTEX PHARMACEUTICALS INC.-2013-000049

PATIENT
  Sex: Female
  Weight: 81 kg

DRUGS (13)
  1. VX-950 (TELAPREVIR) [Suspect]
     Indication: HEPATITIS C
     Dosage: 750 MG, TID
     Route: 048
  2. PEGASYS [Suspect]
     Indication: HEPATITIS C
     Dosage: 180 ?G, UNK
  3. RIBATAB [Suspect]
     Indication: HEPATITIS C
     Dosage: 600 MG, UNK
  4. WELLBUTRIN [Concomitant]
     Dosage: 100 MG, UNK
  5. AMITIZA [Concomitant]
     Dosage: 8 ?G, UNK
  6. CLONAZEPAM [Concomitant]
     Dosage: 1 MG, UNK
  7. NALTREXONE [Concomitant]
     Dosage: 50 MG, UNK
  8. CARBIDOPA LEVODOPA [Concomitant]
     Dosage: 50-200 MG
  9. AMBIEN [Concomitant]
     Dosage: 10 MG, UNK
  10. TRAZODONE [Concomitant]
     Dosage: 100 MG, UNK
  11. PROCHLORPERAZ [Concomitant]
     Dosage: 10 MG, UNK
  12. PROZAC [Concomitant]
     Dosage: 20 MG, UNK
  13. TRI-SPRINTEC [Concomitant]

REACTIONS (8)
  - Dyspnoea [Unknown]
  - Increased upper airway secretion [Unknown]
  - Headache [Unknown]
  - Pyrexia [Unknown]
  - Cough [Unknown]
  - Fatigue [Unknown]
  - Vomiting [Unknown]
  - Nausea [Unknown]
